FAERS Safety Report 16261862 (Version 1)
Quarter: 2019Q2

REPORT INFORMATION
  Report Type: Spontaneous
  Country: US (occurrence: US)
  Receive Date: 20190501
  Receipt Date: 20190501
  Transmission Date: 20190711
  Serious: No
  Sender: FDA-Public Use
  Company Number: US-PFIZER INC-2019177961

PATIENT
  Age: 16 Year
  Sex: Male
  Weight: 70.3 kg

DRUGS (1)
  1. GENOTROPIN [Suspect]
     Active Substance: SOMATROPIN
     Indication: HYPOPITUITARISM
     Dosage: 2.2 MG, 1X/DAY (INJECT 202 MG UNDER THE SKIN/ EVERY NIGHT)
     Route: 058
     Dates: start: 20190121

REACTIONS (1)
  - Headache [Unknown]
